FAERS Safety Report 9147716 (Version 2)
Quarter: 2013Q1

REPORT INFORMATION
  Report Type: Spontaneous
  Country: AT (occurrence: AT)
  Receive Date: 20130307
  Receipt Date: 20130324
  Transmission Date: 20140127
  Serious: Yes (Death)
  Sender: FDA-Public Use
  Company Number: AT-ACTELION-A-CH2013-80248

PATIENT
  Age: 72 Year
  Sex: Female

DRUGS (8)
  1. TRACLEER [Suspect]
     Indication: PULMONARY ARTERIAL HYPERTENSION
     Dosage: 125 MG, BID
     Route: 048
     Dates: start: 201004, end: 20130101
  2. SPIRIVA [Concomitant]
  3. MARCOUMAR [Concomitant]
  4. MYSOLINE [Concomitant]
  5. APREDNISLON [Concomitant]
     Dosage: 25 MG, UNK
  6. LASILACTON [Concomitant]
  7. REVATIO [Concomitant]
     Dosage: UNK, TID
  8. FUREX [Concomitant]

REACTIONS (3)
  - Pulmonary fibrosis [Fatal]
  - Concomitant disease aggravated [Fatal]
  - Respiratory gas exchange disorder [Fatal]
